FAERS Safety Report 5135713-X (Version None)
Quarter: 2006Q4

REPORT INFORMATION
  Report Type: 
  Country: None (occurrence: None)
  Receive Date: 20061026
  Receipt Date: 20030110
  Transmission Date: 20070319
  Serious: Yes (Other)
  Sender: FDA-Public Use
  Company Number: ES-ROCHE-467790

PATIENT
  Age: 19 Year
  Sex: Male

DRUGS (1)
  1. ALL-TRANS-RETINOIC ACID [Suspect]
     Indication: DRUG USE FOR UNKNOWN INDICATION
     Route: 065

REACTIONS (4)
  - CARDIAC TAMPONADE [None]
  - CARDIOGENIC SHOCK [None]
  - PERICARDIAL EFFUSION [None]
  - RETINOIC ACID SYNDROME [None]
